FAERS Safety Report 24189460 (Version 1)
Quarter: 2024Q3

REPORT INFORMATION
  Report Type: Spontaneous
  Country: US (occurrence: None)
  Receive Date: 20240807
  Receipt Date: 20240807
  Transmission Date: 20241017
  Serious: No
  Sender: Public
  Company Number: None

PATIENT
  Sex: Female

DRUGS (1)
  1. NUCALA [Suspect]
     Active Substance: MEPOLIZUMAB
     Indication: Asthma
     Dosage: OTHER QUANTITY : 1 PEN ;?OTHER FREQUENCY : EVERY 28 DAYS;?
     Route: 058
     Dates: start: 20220506

REACTIONS (3)
  - Asthma [None]
  - Infectious mononucleosis [None]
  - Quality of life decreased [None]
